FAERS Safety Report 12269226 (Version 1)
Quarter: 2016Q2

REPORT INFORMATION
  Report Type: Spontaneous
  Country: CA (occurrence: CA)
  Receive Date: 20160414
  Receipt Date: 20160414
  Transmission Date: 20160815
  Serious: No
  Sender: FDA-Public Use
  Company Number: CA-LPDUSPRD-20160001

PATIENT
  Sex: Female

DRUGS (1)
  1. DEXIRON (IRON DEXTRAN INJECTION, USP) (0134C) [Suspect]
     Active Substance: IRON DEXTRAN
     Dosage: DOSE NOT PROVIDED
     Route: 065

REACTIONS (2)
  - Incorrect product storage [Unknown]
  - No adverse event [Unknown]
